FAERS Safety Report 6199556 (Version 8)
Quarter: 2012Q4

REPORT INFORMATION
  Report Type: 
  Country: US (occurrence: US)
  Receive Date: 20061221
  Receipt Date: 20121210
  Transmission Date: 20130627
  Serious: Yes (Other)
  Sender: FDA-Public Use
  Company Number: PHEH2006US15162

PATIENT
  Sex: Female

DRUGS (19)
  1. AREDIA [Suspect]
     Dosage: 90 mg, QMO
     Route: 042
     Dates: end: 2002
  2. ZOMETA [Suspect]
     Dates: end: 200509
  3. KYTRIL [Concomitant]
  4. COUMADIN ^BOOTS^ [Concomitant]
  5. PREVACID [Concomitant]
  6. TYLENOL [Concomitant]
  7. FIORICET [Concomitant]
     Indication: MIGRAINE
  8. FASLODEX [Concomitant]
  9. VALIUM [Concomitant]
  10. DURAGESIC [Concomitant]
  11. ANZEMET [Concomitant]
  12. LOMOTIL [Concomitant]
  13. LASIX [Concomitant]
  14. ALDACTONE [Concomitant]
  15. FENTANYL [Concomitant]
  16. CECLOR [Concomitant]
  17. DARVOCET-N [Concomitant]
  18. ULTRAM [Concomitant]
  19. PROPULSID [Concomitant]

REACTIONS (48)
  - Hydronephrosis [Unknown]
  - Carotid artery stenosis [Unknown]
  - Hepatic cirrhosis [Unknown]
  - Ascites [Unknown]
  - Paracentesis [Unknown]
  - Hepatosplenomegaly [Unknown]
  - Emphysema [Unknown]
  - Osteonecrosis of jaw [Unknown]
  - Jaw disorder [Unknown]
  - Necrosis [Unknown]
  - Pain in jaw [Unknown]
  - Leukocytosis [Unknown]
  - Mucosal inflammation [Unknown]
  - Pharyngeal mass [Unknown]
  - Mucosal ulceration [Unknown]
  - Uterine leiomyoma [Unknown]
  - Serum ferritin increased [Unknown]
  - Arthralgia [Unknown]
  - Back pain [Unknown]
  - Blood urea decreased [Unknown]
  - Red blood cell count decreased [Unknown]
  - Haematocrit decreased [Unknown]
  - Protein total decreased [Unknown]
  - Blood potassium decreased [Unknown]
  - Blood creatinine increased [Unknown]
  - Ammonia increased [Unknown]
  - Blood urea increased [Unknown]
  - Blood calcium increased [Unknown]
  - Platelet count decreased [Unknown]
  - Blood calcium decreased [Unknown]
  - Haemoglobin decreased [Unknown]
  - Diarrhoea [Unknown]
  - Faecaloma [Unknown]
  - Constipation [Unknown]
  - Mental status changes [Unknown]
  - Hepatic encephalopathy [Unknown]
  - Metastases to liver [Unknown]
  - Liver function test abnormal [Unknown]
  - Purulent discharge [Unknown]
  - Sensory disturbance [Unknown]
  - Aneurysm [Unknown]
  - Bone disorder [Unknown]
  - Oral disorder [Unknown]
  - Dental caries [Unknown]
  - Trismus [Unknown]
  - Edentulous [Unknown]
  - Tenderness [Unknown]
  - Oedema [Unknown]
